FAERS Safety Report 8885537 (Version 2)
Quarter: 2012Q4

REPORT INFORMATION
  Report Type: 
  Country: US (occurrence: US)
  Receive Date: 20121101
  Receipt Date: 20121105
  Transmission Date: 20130627
  Serious: Yes (Other)
  Sender: FDA-Public Use
  Company Number: US-PFIZER INC-2012269953

PATIENT

DRUGS (2)
  1. PROTONIX [Suspect]
     Indication: ULCER BLEEDING
     Dosage: 40 mg, UNK
  2. PRILOSEC [Suspect]
     Dosage: 20 mg, UNK

REACTIONS (1)
  - Rheumatoid arthritis [Unknown]
